FAERS Safety Report 19460897 (Version 2)
Quarter: 2021Q2

REPORT INFORMATION
  Report Type: Spontaneous
  Country: US (occurrence: US)
  Receive Date: 20210625
  Receipt Date: 20210629
  Transmission Date: 20210717
  Serious: Yes (Death, Life-Threatening, Other)
  Sender: FDA-Public Use
  Company Number: US-AUROBINDO-AUR-APL-2021-026241

PATIENT
  Age: 29 Year
  Sex: Male

DRUGS (6)
  1. ESCITALOPRAM [Concomitant]
     Active Substance: ESCITALOPRAM OXALATE
     Indication: PRODUCT USED FOR UNKNOWN INDICATION
     Dosage: 10 MILLIGRAM, ONCE A DAY
     Route: 065
  2. PALIPERIDONE. [Concomitant]
     Active Substance: PALIPERIDONE
     Indication: DELUSION
     Dosage: UNK
     Route: 065
  3. DIVALPROEX [Suspect]
     Active Substance: DIVALPROEX SODIUM
     Indication: ACUTE PSYCHOSIS
     Dosage: 500 MILLIGRAM, TWO TIMES A DAY
     Route: 065
  4. PALIPERIDONE. [Concomitant]
     Active Substance: PALIPERIDONE
     Indication: SUICIDAL IDEATION
  5. CARBAMAZEPINE. [Concomitant]
     Active Substance: CARBAMAZEPINE
     Indication: SUICIDAL IDEATION
  6. CARBAMAZEPINE. [Concomitant]
     Active Substance: CARBAMAZEPINE
     Indication: DELUSION
     Dosage: UNK
     Route: 065

REACTIONS (18)
  - Generalised tonic-clonic seizure [Unknown]
  - Diarrhoea [Unknown]
  - Leukocytosis [Unknown]
  - Brain oedema [Unknown]
  - Nausea [Unknown]
  - Dehydration [Unknown]
  - Lethargy [Unknown]
  - Pallor [Unknown]
  - Toxicity to various agents [Unknown]
  - Unmasking of previously unidentified disease [Unknown]
  - Abdominal tenderness [Unknown]
  - Hyperammonaemic encephalopathy [Fatal]
  - Ornithine transcarbamoylase deficiency [Unknown]
  - Ammonia increased [Recovered/Resolved]
  - Depression [Unknown]
  - Brain injury [Unknown]
  - Lactic acidosis [Unknown]
  - Vomiting [Unknown]
